FAERS Safety Report 21099736 (Version 3)
Quarter: 2022Q4

REPORT INFORMATION
  Report Type: Report from Study
  Country: US (occurrence: US)
  Receive Date: 20220719
  Receipt Date: 20221118
  Transmission Date: 20230113
  Serious: Yes (Other)
  Sender: FDA-Public Use
  Company Number: US-BRISTOL-MYERS SQUIBB COMPANY-2022-071704

PATIENT
  Age: 62 Year
  Sex: Female
  Weight: 92.53 kg

DRUGS (1)
  1. REVLIMID [Suspect]
     Active Substance: LENALIDOMIDE
     Indication: Plasma cell myeloma
     Dosage: FREQUENCY: 21 OUT OF 28 DAYS?LOT NUMBER: A3768A; EXPIRATION DATE: 30-SEP-2024
     Route: 048
     Dates: start: 20190208

REACTIONS (5)
  - Lactose intolerance [Unknown]
  - Pancreatitis [Unknown]
  - Neutropenia [Unknown]
  - White blood cell count decreased [Unknown]
  - Product dose omission issue [Unknown]

NARRATIVE: CASE EVENT DATE: 20220201
